FAERS Safety Report 17743662 (Version 1)
Quarter: 2020Q2

REPORT INFORMATION
  Report Type: Spontaneous
  Country: US (occurrence: US)
  Receive Date: 20200505
  Receipt Date: 20200505
  Transmission Date: 20200714
  Serious: Yes (Other)
  Sender: FDA-Public Use
  Company Number: US-ROCHE-2588591

PATIENT
  Age: 18 Year
  Sex: Female

DRUGS (1)
  1. PULMOZYME [Suspect]
     Active Substance: DORNASE ALFA
     Indication: PRODUCT USED FOR UNKNOWN INDICATION
     Dosage: 1 MG/ML AMP*REFRIG?DOSE: 2.5 MG/2.5 ML
     Route: 055
     Dates: start: 201009

REACTIONS (4)
  - Syncope [Unknown]
  - Fatigue [Unknown]
  - Nausea [Unknown]
  - Ocular discomfort [Unknown]

NARRATIVE: CASE EVENT DATE: 20200401
